FAERS Safety Report 25836042 (Version 1)
Quarter: 2025Q3

REPORT INFORMATION
  Report Type: Spontaneous
  Country: US (occurrence: US)
  Receive Date: 20250923
  Receipt Date: 20250923
  Transmission Date: 20251020
  Serious: No
  Sender: BIOCON
  Company Number: US-MIMS-BCONMC-16388

PATIENT

DRUGS (1)
  1. YESINTEK [Suspect]
     Active Substance: USTEKINUMAB-KFCE
     Indication: Product used for unknown indication
     Route: 065
     Dates: start: 20250704

REACTIONS (4)
  - Abdominal discomfort [Unknown]
  - Migraine [Unknown]
  - Cold flash [Unknown]
  - Cough [Unknown]
